FAERS Safety Report 10071761 (Version 1)
Quarter: 2014Q2

REPORT INFORMATION
  Report Type: Spontaneous
  Country: IN (occurrence: IN)
  Receive Date: 20140411
  Receipt Date: 20140411
  Transmission Date: 20141212
  Serious: Yes (Death, Other)
  Sender: FDA-Public Use
  Company Number: IN-009507513-1404IND005227

PATIENT
  Age: 56 Year
  Sex: Male
  Weight: 65 kg

DRUGS (1)
  1. JANUMET [Suspect]
     Dosage: 2 DF, BID
     Route: 048

REACTIONS (3)
  - Death [Fatal]
  - Cardiac operation [Unknown]
  - Renal failure [Unknown]
